FAERS Safety Report 9907139 (Version 2)
Quarter: 2014Q1

REPORT INFORMATION
  Report Type: Spontaneous
  Country: DK (occurrence: FR)
  Receive Date: 20140218
  Receipt Date: 20140228
  Transmission Date: 20141002
  Serious: Yes (Hospitalization)
  Sender: FDA-Public Use
  Company Number: FR-FRI-1000054204

PATIENT
  Age: 40 Year
  Sex: Male

DRUGS (8)
  1. ESCITALOPRAM [Suspect]
     Indication: DEPRESSION
     Dosage: 1 DF
     Route: 048
  2. OXYCONTIN LP [Suspect]
     Indication: PAIN
     Dosage: 12 DF
     Route: 048
  3. OXYNORM [Suspect]
     Indication: PAIN
     Dosage: UP TO 8 CAPSULES DAILY
     Route: 048
  4. DEPAMIDE [Suspect]
     Indication: AFFECTIVE DISORDER
     Dosage: 4 DF
     Route: 048
  5. LYRICA [Suspect]
     Indication: PAIN
     Dosage: 2 DF
     Route: 048
  6. ESOMEPRAZOLE [Concomitant]
     Dosage: 20 MG
     Route: 048
  7. GUTRON [Concomitant]
     Dosage: 2 DF
     Route: 048
  8. AERIUS [Concomitant]
     Dosage: 1 DF
     Route: 048

REACTIONS (2)
  - Malaise [Recovered/Resolved]
  - Loss of consciousness [Recovered/Resolved]
